FAERS Safety Report 19751187 (Version 2)
Quarter: 2021Q3

REPORT INFORMATION
  Report Type: Spontaneous
  Country: US (occurrence: US)
  Receive Date: 20210826
  Receipt Date: 20210908
  Transmission Date: 20211014
  Serious: Yes (Life-Threatening, Hospitalization)
  Sender: FDA-Public Use
  Company Number: US-TEVA-2021-US-1944754

PATIENT
  Age: 49 Year
  Sex: Male

DRUGS (2)
  1. METOPROLOL?TARTRATE [Suspect]
     Active Substance: METOPROLOL TARTRATE
     Indication: VENTRICULAR EXTRASYSTOLES
     Route: 065
  2. METOPROLOL?TARTRATE [Suspect]
     Active Substance: METOPROLOL TARTRATE
     Indication: SUPRAVENTRICULAR TACHYCARDIA

REACTIONS (1)
  - Drug ineffective [Unknown]
